FAERS Safety Report 23721143 (Version 1)
Quarter: 2024Q2

REPORT INFORMATION
  Report Type: Spontaneous
  Country: US (occurrence: US)
  Receive Date: 20240409
  Receipt Date: 20240409
  Transmission Date: 20240715
  Serious: No
  Sender: FDA-Public Use
  Company Number: US-ABBVIE-5709316

PATIENT
  Age: 74 Year
  Sex: Male

DRUGS (2)
  1. RESTASIS [Suspect]
     Active Substance: CYCLOSPORINE
     Indication: Dry eye
     Dosage: 1 TO 2 DROPS IN EACH EYE
     Route: 047
     Dates: start: 202301
  2. RESTASIS [Suspect]
     Active Substance: CYCLOSPORINE
     Dosage: 1 TO 2 DROPS IN EACH EYE
     Route: 047
     Dates: start: 202301

REACTIONS (1)
  - Eye irritation [Recovering/Resolving]

NARRATIVE: CASE EVENT DATE: 20240404
